FAERS Safety Report 9020773 (Version 1)
Quarter: 2013Q1

REPORT INFORMATION
  Report Type: Spontaneous
  Country: US (occurrence: US)
  Receive Date: 20130119
  Receipt Date: 20130119
  Transmission Date: 20140127
  Serious: No
  Sender: FDA-Public Use
  Company Number: US-ALLERGAN-1206088US

PATIENT
  Sex: Female

DRUGS (7)
  1. BOTOX COSMETIC [Suspect]
     Indication: SKIN WRINKLING
     Dosage: 15 UNITS, SINGLE
     Route: 030
     Dates: start: 20111229, end: 20111229
  2. BOTOX COSMETIC [Suspect]
     Dosage: 50 UNITS, SINGLE
     Route: 030
     Dates: start: 20120127, end: 20120127
  3. BOTOX COSMETIC [Suspect]
     Dosage: 35 UNITS, SINGLE
     Route: 030
     Dates: start: 20120214, end: 20120214
  4. BOTOX COSMETIC [Suspect]
     Dosage: 20 UNITS, SINGLE
     Route: 030
     Dates: start: 20120302, end: 20120302
  5. BOTOX COSMETIC [Suspect]
     Dosage: 15 UNITS, SINGLE
     Route: 030
     Dates: start: 20120316, end: 20120316
  6. IMMUNITY BOOSTERS [Concomitant]
     Indication: PRODUCT USED FOR UNKNOWN INDICATION
  7. WELLNESS TABS [Concomitant]
     Indication: PRODUCT USED FOR UNKNOWN INDICATION

REACTIONS (1)
  - Drug ineffective [Unknown]
